FAERS Safety Report 9116929 (Version 1)
Quarter: 2013Q1

REPORT INFORMATION
  Report Type: Spontaneous
  Country: US (occurrence: US)
  Receive Date: 20130225
  Receipt Date: 20130225
  Transmission Date: 20140127
  Serious: Yes (Other)
  Sender: FDA-Public Use
  Company Number: US-009507513-1302USA010850

PATIENT
  Sex: 0

DRUGS (2)
  1. JANUVIA [Suspect]
  2. TRAJENTA [Suspect]

REACTIONS (1)
  - Pancreatitis [Unknown]
